FAERS Safety Report 5314057-7 (Version None)
Quarter: 2007Q2

REPORT INFORMATION
  Report Type: 
  Country: None (occurrence: None)
  Receive Date: 20070501
  Receipt Date: 20070425
  Transmission Date: 20071010
  Serious: Yes (Hospitalization, Other)
  Sender: FDA-Public Use
  Company Number: JP-SP-2006-03278

PATIENT
  Age: 82 Year
  Sex: Male

DRUGS (3)
  1. IMMUCYST [Suspect]
     Indication: BLADDER TRANSITIONAL CELL CARCINOMA
     Route: 043
     Dates: start: 20060925, end: 20061108
  2. IMMUCYST [Suspect]
     Route: 043
     Dates: start: 20060925, end: 20061108
  3. INFLUENZA VACCINE [Concomitant]

REACTIONS (8)
  - BOVINE TUBERCULOSIS [None]
  - COUGH [None]
  - INCORRECT DRUG DOSAGE FORM ADMINISTERED [None]
  - MICTURITION DISORDER [None]
  - PYELOCYSTITIS [None]
  - PYREXIA [None]
  - PYURIA [None]
  - URINARY BLADDER HAEMORRHAGE [None]
